FAERS Safety Report 8941949 (Version 1)
Quarter: 2012Q4

REPORT INFORMATION
  Report Type: 
  Country: US (occurrence: US)
  Receive Date: 20121130
  Receipt Date: 20121130
  Transmission Date: 20130627
  Serious: Yes (Other)
  Sender: FDA-Public Use
  Company Number: US-VERTEX PHARMACEUTICAL INC.-2012-025350

PATIENT
  Sex: Female
  Weight: 88 kg

DRUGS (3)
  1. VX-950 (TELAPREVIR) [Suspect]
     Indication: HEPATITIS C
     Dosage: 750 mg, tid
     Route: 048
     Dates: start: 201205
  2. RIBASPHERE [Concomitant]
     Indication: HEPATITIS C
     Dosage: 400 mg am, 200 mg pm
     Route: 048
     Dates: start: 201205
  3. PEGASYS [Concomitant]
     Indication: HEPATITIS C
     Dosage: 180 ?g, qw
     Route: 058
     Dates: start: 201205

REACTIONS (1)
  - Breast cancer [Unknown]
